FAERS Safety Report 5457131-7 (Version None)
Quarter: 2007Q3

REPORT INFORMATION
  Report Type: 
  Country: None (occurrence: None)
  Receive Date: 20070918
  Receipt Date: 20070108
  Transmission Date: 20080115
  Serious: No
  Sender: FDA-Public Use
  Company Number: US-ASTRAZENECA-2007UW00427

PATIENT
  Age: 89 Year
  Sex: Male

DRUGS (3)
  1. SEROQUEL [Suspect]
     Indication: SLEEP DISORDER
     Route: 048
  2. SINEMET [Suspect]
  3. ZYPREXA [Suspect]

REACTIONS (3)
  - DIZZINESS [None]
  - HEADACHE [None]
  - OVERDOSE [None]
